FAERS Safety Report 5352039-X (Version None)
Quarter: 2007Q2

REPORT INFORMATION
  Report Type: 
  Country: None (occurrence: None)
  Receive Date: 20070607
  Receipt Date: 20070607
  Transmission Date: 20071010
  Serious: Yes (Life-Threatening, Other)
  Sender: FDA-Public Use
  Company Number: None

PATIENT
  Age: 46 Year
  Sex: Female
  Weight: 104.7809 kg

DRUGS (2)
  1. PROPRANOLOL [Suspect]
     Indication: MITRAL VALVE PROLAPSE
     Dosage: 80 MG SA ONCE A DAY PO
     Route: 048
     Dates: start: 20070409, end: 20070531
  2. PROPRANOLOL [Suspect]
     Indication: PALPITATIONS
     Dosage: 80 MG SA ONCE A DAY PO
     Route: 048
     Dates: start: 20070409, end: 20070531

REACTIONS (3)
  - DYSPNOEA [None]
  - PHARMACEUTICAL PRODUCT COMPLAINT [None]
  - VENTRICULAR EXTRASYSTOLES [None]
